FAERS Safety Report 10169332 (Version 3)
Quarter: 2014Q2

REPORT INFORMATION
  Report Type: Spontaneous
  Country: US (occurrence: US)
  Receive Date: 20140513
  Receipt Date: 20140612
  Transmission Date: 20141212
  Serious: No
  Sender: FDA-Public Use
  Company Number: US-PFIZER INC-2014129045

PATIENT
  Age: 78 Year
  Sex: Female

DRUGS (3)
  1. INLYTA [Suspect]
     Indication: RENAL CANCER
     Dosage: 5 MG, 2X/DAY
     Dates: start: 20140429
  2. INLYTA [Suspect]
     Dosage: 5 MG, 2X/DAY
     Dates: start: 20140429
  3. INLYTA [Suspect]
     Dosage: 5 MG, 2X/DAY
     Dates: start: 20140521

REACTIONS (9)
  - Asthenia [Unknown]
  - Decreased appetite [Unknown]
  - Dysphonia [Unknown]
  - Pruritus [Unknown]
  - Constipation [Unknown]
  - Memory impairment [Unknown]
  - Cognitive disorder [Unknown]
  - Mobility decreased [Unknown]
  - Blood calcium increased [Unknown]
